FAERS Safety Report 6744979-1 (Version None)
Quarter: 2010Q2

REPORT INFORMATION
  Report Type: 
  Country: None (occurrence: None)
  Receive Date: 20100527
  Receipt Date: 20100520
  Transmission Date: 20101027
  Serious: Yes (Death, Hospitalization)
  Sender: FDA-Public Use
  Company Number: ES-ROCHE-704427

PATIENT
  Age: 68 Year
  Sex: Female

DRUGS (8)
  1. AVASTIN [Suspect]
     Indication: LUNG NEOPLASM MALIGNANT
     Route: 065
     Dates: start: 20100222, end: 20100413
  2. EBASTINE [Suspect]
     Indication: DRUG USE FOR UNKNOWN INDICATION
     Route: 048
     Dates: start: 20100302
  3. EMEND [Suspect]
     Indication: VOMITING
     Route: 048
     Dates: start: 20100222, end: 20100415
  4. ACETYLCYSTEINE [Suspect]
     Indication: DRUG USE FOR UNKNOWN INDICATION
     Route: 048
     Dates: start: 20100420
  5. CISPLATIN [Suspect]
     Indication: LUNG NEOPLASM MALIGNANT
     Route: 065
     Dates: start: 20100222, end: 20100413
  6. PRIMPERAN TAB [Suspect]
     Indication: VOMITING
     Route: 048
     Dates: start: 20100222, end: 20100422
  7. OMEPRAZOLE [Suspect]
     Indication: PROPHYLAXIS AGAINST GASTROINTESTINAL ULCER
     Route: 048
     Dates: start: 20100222, end: 20100422
  8. GEMCITABINE HYDROCHLORIDE [Suspect]
     Indication: LUNG NEOPLASM MALIGNANT
     Route: 048
     Dates: start: 20100222, end: 20100413

REACTIONS (1)
  - CEREBRAL HAEMORRHAGE [None]
